FAERS Safety Report 19116287 (Version 1)
Quarter: 2021Q2

REPORT INFORMATION
  Report Type: Spontaneous
  Country: FR (occurrence: FR)
  Receive Date: 20210409
  Receipt Date: 20210409
  Transmission Date: 20210717
  Serious: Yes (Other)
  Sender: FDA-Public Use
  Company Number: FR-VALIDUS PHARMACEUTICALS LLC-FR-2021VAL000444

PATIENT
  Age: 86 Year
  Sex: Male

DRUGS (8)
  1. ESIDREX [Concomitant]
     Active Substance: HYDROCHLOROTHIAZIDE
     Indication: PRODUCT USED FOR UNKNOWN INDICATION
  2. DIFFU?K [Concomitant]
     Active Substance: POTASSIUM CHLORIDE
     Indication: PRODUCT USED FOR UNKNOWN INDICATION
  3. ALDACTONE [Concomitant]
     Active Substance: SPIRONOLACTONE
     Indication: PRODUCT USED FOR UNKNOWN INDICATION
  4. BISOPROLOL HEMIFUMARATE [Concomitant]
     Active Substance: BISOPROLOL FUMARATE
     Indication: PRODUCT USED FOR UNKNOWN INDICATION
     Dosage: UNK
     Route: 065
  5. PREVISCAN                          /00261401/ [Concomitant]
     Active Substance: PENTOXIFYLLINE
     Indication: PRODUCT USED FOR UNKNOWN INDICATION
     Dosage: UNK
  6. CORTANCYL [Concomitant]
     Active Substance: PREDNISONE
     Indication: PRODUCT USED FOR UNKNOWN INDICATION
  7. ALLOPURINOL. [Concomitant]
     Active Substance: ALLOPURINOL
     Indication: PRODUCT USED FOR UNKNOWN INDICATION
     Dosage: UNK
     Route: 065
  8. FUROSEMIDE. [Suspect]
     Active Substance: FUROSEMIDE
     Indication: PRODUCT USED FOR UNKNOWN INDICATION
     Dosage: 500 MG IN THE MORNING AND 250 MG AT NOON
     Route: 065

REACTIONS (1)
  - Loss of consciousness [Unknown]
